FAERS Safety Report 11982630 (Version 1)
Quarter: 2016Q1

REPORT INFORMATION
  Report Type: Spontaneous
  Country: FR (occurrence: FR)
  Receive Date: 20160201
  Receipt Date: 20160201
  Transmission Date: 20160526
  Serious: Yes (Hospitalization)
  Sender: FDA-Public Use
  Company Number: PHHY2016FR012625

PATIENT
  Age: 48 Year
  Sex: Male

DRUGS (1)
  1. TOBI PODHALER [Suspect]
     Active Substance: TOBRAMYCIN
     Indication: BRONCHIECTASIS
     Dosage: UNK
     Route: 065
     Dates: start: 201510, end: 2015

REACTIONS (2)
  - Product use issue [Recovered/Resolved]
  - Nephrolithiasis [Recovered/Resolved]

NARRATIVE: CASE EVENT DATE: 201510
